FAERS Safety Report 23565360 (Version 10)
Quarter: 2025Q1

REPORT INFORMATION
  Report Type: Spontaneous
  Country: US (occurrence: US)
  Receive Date: 20240226
  Receipt Date: 20250323
  Transmission Date: 20250409
  Serious: Yes (Other)
  Sender: SANOFI AVENTIS
  Company Number: US-SA-SAC20240223000172

PATIENT
  Age: 34 Year
  Sex: Male
  Weight: 79.55 kg

DRUGS (8)
  1. ALPROLIX [Suspect]
     Active Substance: EFTRENONACOG ALFA
     Indication: Factor IX deficiency
     Dosage: 7900 U (7110-8690), QD FOR BLEEDING EPISODES (SLOW IV PUSH)
     Route: 042
     Dates: start: 202401
  2. ALPROLIX [Suspect]
     Active Substance: EFTRENONACOG ALFA
     Indication: Factor IX deficiency
     Dosage: 7900 U (7110-8690), QD FOR BLEEDING EPISODES (SLOW IV PUSH)
     Route: 042
     Dates: start: 202401
  3. ALPROLIX [Suspect]
     Active Substance: EFTRENONACOG ALFA
     Dosage: 7900 U (7110-8690), Q10D FOR PROPHYLAXIS (VIA SLOW IV PUSH)
     Route: 042
     Dates: start: 202401
  4. ALPROLIX [Suspect]
     Active Substance: EFTRENONACOG ALFA
     Dosage: 7900 U (7110-8690), Q10D FOR PROPHYLAXIS (VIA SLOW IV PUSH)
     Route: 042
     Dates: start: 202401
  5. ALPROLIX [Suspect]
     Active Substance: EFTRENONACOG ALFA
     Route: 042
     Dates: start: 202401
  6. ALPROLIX [Suspect]
     Active Substance: EFTRENONACOG ALFA
     Route: 042
     Dates: start: 202401
  7. IDELVION [Concomitant]
     Active Substance: COAGULATION FACTOR IX RECOMBINANT HUMAN
     Indication: Haemorrhage
     Dosage: UNK, QD
  8. IDELVION [Concomitant]
     Active Substance: COAGULATION FACTOR IX RECOMBINANT HUMAN
     Indication: Haemorrhage prophylaxis
     Dosage: 7900 UNITS (7110-8690) Q10D
     Route: 042

REACTIONS (9)
  - Muscle haemorrhage [Unknown]
  - Injury [Unknown]
  - Haemorrhage [Recovered/Resolved]
  - Haemorrhage [Recovered/Resolved]
  - Haemorrhage [Recovered/Resolved]
  - Weight increased [Unknown]
  - Haemorrhage [Recovered/Resolved]
  - Haemorrhage [Unknown]
  - Haemorrhage [Recovered/Resolved]

NARRATIVE: CASE EVENT DATE: 20240101
